FAERS Safety Report 4693704-7 (Version None)
Quarter: 2005Q2

REPORT INFORMATION
  Report Type: 
  Country: None (occurrence: None)
  Receive Date: 20050615
  Receipt Date: 20050601
  Transmission Date: 20051028
  Serious: Yes (Life-Threatening, Other)
  Sender: FDA-Public Use
  Company Number: USA050394150

PATIENT
  Age: 51 Year
  Sex: Female
  Weight: 52 kg

DRUGS (9)
  1. CYMBALTA [Suspect]
     Indication: DIABETIC NEUROPATHY
     Dosage: 120 MG
     Dates: start: 20041209, end: 20050216
  2. CYMBALTA [Suspect]
     Indication: NEUROPATHIC PAIN
     Dosage: 120 MG
     Dates: start: 20041209, end: 20050216
  3. OXYCONTIN [Concomitant]
  4. NEURONTIN [Concomitant]
  5. ZIAC [Concomitant]
  6. PREMARIN [Concomitant]
  7. ZELNORM [Concomitant]
  8. FOLIC ACID [Concomitant]
  9. LORAZEPAM [Concomitant]

REACTIONS (14)
  - ANXIETY [None]
  - BLOOD CHLORIDE DECREASED [None]
  - BLOOD GLUCOSE INCREASED [None]
  - BLOOD POTASSIUM DECREASED [None]
  - BLOOD PRESSURE INCREASED [None]
  - BLOOD UREA DECREASED [None]
  - CHEST PAIN [None]
  - CREATINE PHOSPHOKINASE DECREASED [None]
  - DIZZINESS [None]
  - MALAISE [None]
  - NAUSEA [None]
  - NO THERAPEUTIC RESPONSE [None]
  - PARAESTHESIA [None]
  - TREMOR [None]
